FAERS Safety Report 5098958-3 (Version None)
Quarter: 2006Q3

REPORT INFORMATION
  Report Type: 
  Country: None (occurrence: None)
  Receive Date: 20060907
  Receipt Date: 20060828
  Transmission Date: 20061208
  Serious: Yes (Disabling)
  Sender: FDA-Public Use
  Company Number: 2006CG01454

PATIENT
  Sex: Male

DRUGS (1)
  1. CRESTOR [Suspect]
     Route: 048
     Dates: start: 20050101, end: 20060101

REACTIONS (4)
  - ACUTE VESTIBULAR SYNDROME [None]
  - DEAFNESS UNILATERAL [None]
  - MUSCLE CONTRACTIONS INVOLUNTARY [None]
  - MUSCLE FATIGUE [None]
